FAERS Safety Report 9320234 (Version 1)
Quarter: 2013Q2

REPORT INFORMATION
  Report Type: Spontaneous
  Country: US (occurrence: US)
  Receive Date: 20130530
  Receipt Date: 20130530
  Transmission Date: 20140414
  Serious: No
  Sender: FDA-Public Use
  Company Number: US-ASTRAZENECA-2013SE35308

PATIENT
  Age: 75 Year
  Sex: Female
  Weight: 70.3 kg

DRUGS (8)
  1. NEXIUM [Suspect]
     Indication: GASTROOESOPHAGEAL REFLUX DISEASE
     Route: 048
  2. NEXIUM [Suspect]
     Indication: GASTROOESOPHAGEAL REFLUX DISEASE
     Route: 048
  3. METOPROLOL XR [Suspect]
     Indication: HYPERTENSION
     Route: 048
  4. DIOVAN [Concomitant]
     Indication: HYPERTENSION
  5. TRIAMETERENE/HCTZ [Concomitant]
     Indication: HYPERTENSION
  6. LIPITOR [Concomitant]
     Indication: BLOOD CHOLESTEROL INCREASED
  7. POTASSIUM [Concomitant]
  8. BABY ASPIRIN [Concomitant]

REACTIONS (9)
  - Back disorder [Unknown]
  - Hearing impaired [Unknown]
  - Limb discomfort [Unknown]
  - Osteoarthritis [Unknown]
  - Pain in jaw [Unknown]
  - Pharyngeal inflammation [Unknown]
  - Spinal column stenosis [Unknown]
  - Chest pain [Unknown]
  - Intentional drug misuse [Unknown]
